FAERS Safety Report 14169710 (Version 1)
Quarter: 2017Q4

REPORT INFORMATION
  Report Type: Spontaneous
  Country: JP (occurrence: JP)
  Receive Date: 20171108
  Receipt Date: 20171108
  Transmission Date: 20180321
  Serious: Yes (Hospitalization)
  Sender: FDA-Public Use
  Company Number: JP-UNITED THERAPEUTICS-UNT-2017-015700

PATIENT
  Age: 6 Year
  Sex: Male
  Weight: 14.9 kg

DRUGS (3)
  1. TECELEUKIN [Suspect]
     Active Substance: TECELEUKIN
     Indication: NEUROBLASTOMA
     Dosage: 750000 U/M2, UNK
     Route: 041
     Dates: start: 20171016, end: 20171019
  2. FILGRASTIM [Concomitant]
     Active Substance: FILGRASTIM
     Indication: NEUROBLASTOMA
     Dosage: UNK
     Route: 058
  3. UNITUXIN [Suspect]
     Active Substance: DINUTUXIMAB
     Indication: NEUROBLASTOMA
     Dosage: 17.5 MG/M2, UNK
     Route: 041
     Dates: start: 20170922

REACTIONS (1)
  - Pulmonary oedema [Recovered/Resolved]

NARRATIVE: CASE EVENT DATE: 20171021
